FAERS Safety Report 6940850-0 (Version None)
Quarter: 2010Q3

REPORT INFORMATION
  Report Type: 
  Country: None (occurrence: None)
  Receive Date: 20100825
  Receipt Date: 20100810
  Transmission Date: 20110219
  Serious: Yes (Hospitalization, Other)
  Sender: FDA-Public Use
  Company Number: BR-MEDIMMUNE-MEDI-0011427

PATIENT
  Sex: Male
  Weight: 7.11 kg

DRUGS (4)
  1. SYNAGIS [Suspect]
     Indication: BRONCHOPULMONARY DYSPLASIA
     Route: 030
     Dates: start: 20100524, end: 20100524
  2. DOMPERIDONE [Concomitant]
     Indication: VOMITING
     Route: 048
  3. BUDESONIDE [Concomitant]
     Dosage: 4 PUFF
  4. RANITIDINE [Concomitant]
     Route: 048

REACTIONS (7)
  - COUGH [None]
  - FATIGUE [None]
  - INCREASED BRONCHIAL SECRETION [None]
  - NASOPHARYNGITIS [None]
  - PNEUMONIA [None]
  - PYREXIA [None]
  - VOMITING [None]
